FAERS Safety Report 6883841-0 (Version None)
Quarter: 2010Q3

REPORT INFORMATION
  Report Type: 
  Country: None (occurrence: None)
  Receive Date: 20100729
  Receipt Date: 20100714
  Transmission Date: 20110219
  Serious: Yes (Hospitalization, Other)
  Sender: FDA-Public Use
  Company Number: PHHY2010PL46579

PATIENT
  Sex: Male
  Weight: 70 kg

DRUGS (8)
  1. CERTICAN [Suspect]
     Indication: RENAL TRANSPLANT
     Dosage: 2.5 MG/DAY
     Route: 048
     Dates: start: 20091215, end: 20100713
  2. CERTICAN [Suspect]
     Indication: SKIN CANCER
  3. CERTICAN [Suspect]
     Indication: NEPHROPATHY TOXIC
  4. ENCORTON [Concomitant]
     Dosage: 5 MG, UNK
     Route: 048
     Dates: start: 20000101
  5. CELLCEPT [Concomitant]
     Dosage: 1000 MG, UNK
     Route: 048
     Dates: start: 20030101
  6. SORTIS [Concomitant]
     Dosage: 20 MG, UNK
     Route: 048
     Dates: start: 20100601
  7. DOXAR [Concomitant]
     Dosage: 4 MG, UNK
     Route: 048
     Dates: start: 20040101
  8. PRESTARIUM [Concomitant]
     Dosage: 5 MG, UNK
     Route: 048

REACTIONS (9)
  - C-REACTIVE PROTEIN INCREASED [None]
  - LUNG ABSCESS [None]
  - LUNG DISORDER [None]
  - LUNG NEOPLASM [None]
  - PLEURITIC PAIN [None]
  - PNEUMONIA [None]
  - PULMONARY EMBOLISM [None]
  - PULMONARY FIBROSIS [None]
  - PYREXIA [None]
